FAERS Safety Report 16702171 (Version 2)
Quarter: 2019Q3

REPORT INFORMATION
  Report Type: Report from Study
  Country: DE (occurrence: DE)
  Receive Date: 20190814
  Receipt Date: 20190823
  Transmission Date: 20191004
  Serious: Yes (Other)
  Sender: FDA-Public Use
  Company Number: DE-AUROBINDO-AUR-APL-2019-051902

PATIENT

DRUGS (9)
  1. ACETYLSALICYLIC ACID [Suspect]
     Active Substance: ASPIRIN
     Indication: MIGRAINE
     Dosage: UNK
     Route: 065
  2. METOCLOPRAMIDE. [Concomitant]
     Active Substance: METOCLOPRAMIDE
     Indication: PRODUCT USED FOR UNKNOWN INDICATION
     Dosage: UNK
     Route: 065
  3. PARACETAMOL [Suspect]
     Active Substance: ACETAMINOPHEN
     Indication: MIGRAINE
     Dosage: UNK,
     Route: 065
  4. PETADOLEX [Suspect]
     Active Substance: HERBALS
     Indication: MIGRAINE
     Dosage: 50 MILLIGRAM, DAILY
     Route: 065
  5. PETADOLEX [Suspect]
     Active Substance: HERBALS
     Dosage: UNK
     Route: 065
  6. PETADOLEX [Suspect]
     Active Substance: HERBALS
     Dosage: 100 MILLIGRAM, DAILY
     Route: 065
  7. HYPERFORAT [Suspect]
     Active Substance: HYPERICUM PERFORATUM
     Indication: MIGRAINE
     Dosage: UNK
     Route: 065
  8. FENISTIL [Concomitant]
     Active Substance: DIMETHINDENE
     Indication: PRODUCT USED FOR UNKNOWN INDICATION
     Dosage: UNK
     Route: 065
  9. IBUPROFEN. [Suspect]
     Active Substance: IBUPROFEN
     Indication: MIGRAINE
     Dosage: UNK
     Route: 065

REACTIONS (9)
  - Transaminases increased [Unknown]
  - Hepatitis cholestatic [Unknown]
  - Eczema [Unknown]
  - Hepatobiliary disease [Unknown]
  - Jaundice [Unknown]
  - Hepatitis acute [Unknown]
  - Malaise [Unknown]
  - Hepatic necrosis [Recovering/Resolving]
  - Pruritus [Unknown]
